FAERS Safety Report 24816726 (Version 2)
Quarter: 2025Q1

REPORT INFORMATION
  Report Type: Report from Study
  Country: US (occurrence: US)
  Receive Date: 20250107
  Receipt Date: 20250123
  Transmission Date: 20250409
  Serious: Yes (Other)
  Sender: ABBVIE
  Company Number: US-ABBVIE-6072790

PATIENT
  Age: 42 Year
  Sex: Female
  Weight: 57.606 kg

DRUGS (2)
  1. QULIPTA [Suspect]
     Active Substance: ATOGEPANT
     Indication: Migraine
     Dosage: 60 MILLIGRAM
     Route: 048
     Dates: start: 20240820
  2. ASPIRIN [Concomitant]
     Active Substance: ASPIRIN
     Indication: Cardiac valve disease

REACTIONS (5)
  - Brain neoplasm [Recovered/Resolved]
  - Spinal pain [Unknown]
  - Pain in extremity [Not Recovered/Not Resolved]
  - Poor quality sleep [Unknown]
  - Sleep disorder [Not Recovered/Not Resolved]

NARRATIVE: CASE EVENT DATE: 20240827
